FAERS Safety Report 9405551 (Version 2)
Quarter: 2013Q3

REPORT INFORMATION
  Report Type: Spontaneous
  Country: US (occurrence: US)
  Receive Date: 20130717
  Receipt Date: 20130822
  Transmission Date: 20140515
  Serious: Yes (Other)
  Sender: FDA-Public Use
  Company Number: US-AMGEN-USASP2013049958

PATIENT
  Age: 66 Year
  Sex: Female
  Weight: 97.51 kg

DRUGS (3)
  1. ENBREL [Suspect]
     Indication: RHEUMATOID ARTHRITIS
     Dosage: UNK
     Route: 065
  2. CELEBREX [Suspect]
     Indication: ARTHRALGIA
     Dosage: 200 MG, BID
     Route: 048
  3. PREMARIN [Suspect]
     Indication: HYSTERECTOMY
     Dosage: 0.45 MG, QD
     Route: 048
     Dates: end: 201211

REACTIONS (1)
  - Surgery [Unknown]
